FAERS Safety Report 14222465 (Version 3)
Quarter: 2018Q1

REPORT INFORMATION
  Report Type: Report from Study
  Country: CA (occurrence: CA)
  Receive Date: 20171124
  Receipt Date: 20180206
  Transmission Date: 20180508
  Serious: Yes (Death, Other)
  Sender: FDA-Public Use
  Company Number: CA-AMGEN-CANCT2017176335

PATIENT
  Age: 67 Year
  Sex: Male

DRUGS (23)
  1. ONDANSETRON [Concomitant]
     Active Substance: ONDANSETRON
     Indication: SUPPORTIVE CARE
     Dosage: UNK
     Dates: start: 20171103, end: 20171103
  2. SODIUM CHLORIDE. [Concomitant]
     Active Substance: SODIUM CHLORIDE
     Indication: SUPPORTIVE CARE
     Dosage: UNK
     Dates: start: 20171101, end: 20171108
  3. LORAZEPAM. [Concomitant]
     Active Substance: LORAZEPAM
     Indication: SUPPORTIVE CARE
     Dosage: UNK
     Dates: start: 20171104, end: 20171105
  4. ALLOPURINOL. [Concomitant]
     Active Substance: ALLOPURINOL
     Indication: SUPPORTIVE CARE
     Dosage: UNK
     Dates: start: 20171102, end: 20171104
  5. CALCIUM GLUCONATE. [Concomitant]
     Active Substance: CALCIUM GLUCONATE
     Indication: SUPPORTIVE CARE
     Dosage: UNK
     Dates: start: 20171105, end: 20171105
  6. RANITIDINE. [Concomitant]
     Active Substance: RANITIDINE
     Indication: SUPPORTIVE CARE
     Dosage: UNK
     Dates: start: 20171101, end: 20171104
  7. LANSOPRAZOLE. [Concomitant]
     Active Substance: LANSOPRAZOLE
     Indication: SUPPORTIVE CARE
     Dosage: UNK
     Dates: start: 20171102, end: 20171104
  8. CARFILZOMIB [Suspect]
     Active Substance: CARFILZOMIB
     Indication: PLASMA CELL MYELOMA
     Dosage: 20 MG/M2, PER CHEMO REGIM
     Route: 042
     Dates: start: 20171103, end: 20171103
  9. ACYCLOVIR. [Concomitant]
     Active Substance: ACYCLOVIR
     Indication: SUPPORTIVE CARE
     Dosage: UNK
     Dates: start: 20171101, end: 20171106
  10. ALUMINIUM HYDROXIDE W/MAGNESIUM HYDROXIDE [Concomitant]
     Active Substance: ALUMINUM HYDROXIDE\MAGNESIUM HYDROXIDE
     Indication: SUPPORTIVE CARE
     Dosage: UNK
     Dates: start: 20171103, end: 20171103
  11. METOCLOPRAMIDE. [Concomitant]
     Active Substance: METOCLOPRAMIDE
     Indication: SUPPORTIVE CARE
     Dosage: UNK
     Dates: start: 20171104, end: 20171107
  12. CYCLOPHOSPHAMIDE. [Suspect]
     Active Substance: CYCLOPHOSPHAMIDE
     Indication: PLASMA CELL MYELOMA
     Dosage: 500 MG, PER CHEMO REGIM
     Route: 048
     Dates: start: 20171103, end: 20171103
  13. RASBURICASE [Concomitant]
     Active Substance: RASBURICASE
     Indication: TUMOUR LYSIS SYNDROME
     Dosage: UNK
     Dates: start: 20171101, end: 20171105
  14. HYDROMORPHONE [Concomitant]
     Active Substance: HYDROMORPHONE
     Indication: SUPPORTIVE CARE
     Dosage: UNK
     Dates: start: 20171101, end: 20171109
  15. DEXAMETHASONE. [Concomitant]
     Active Substance: DEXAMETHASONE
     Indication: SUPPORTIVE CARE
     Dosage: UNK
     Dates: start: 20171101, end: 20171104
  16. GABAPENTIN. [Concomitant]
     Active Substance: GABAPENTIN
     Indication: SUPPORTIVE CARE
     Dosage: UNK
     Dates: start: 20171101, end: 20171104
  17. PANTOPRAZOLE [Concomitant]
     Active Substance: PANTOPRAZOLE
     Indication: SUPPORTIVE CARE
     Dosage: UNK
     Dates: start: 20171105, end: 20171107
  18. INSULIN ASPART [Concomitant]
     Active Substance: INSULIN ASPART
     Indication: SUPPORTIVE CARE
     Dosage: UNK
     Dates: start: 20171105, end: 20171107
  19. DEXAMETHASONE. [Suspect]
     Active Substance: DEXAMETHASONE
     Indication: PLASMA CELL MYELOMA
     Dosage: 40 MG, PER CHEMO REGIM
     Route: 048
     Dates: start: 20171103, end: 20171103
  20. HALOPERIDOL. [Concomitant]
     Active Substance: HALOPERIDOL
     Indication: SUPPORTIVE CARE
     Dosage: UNK
     Dates: start: 20171105, end: 20171107
  21. SALBUTAMOL [Concomitant]
     Active Substance: ALBUTEROL
     Indication: SUPPORTIVE CARE
     Dosage: UNK
     Dates: start: 20171106, end: 20171107
  22. HYDROMORPH CONTIN [Concomitant]
     Active Substance: HYDROMORPHONE
     Indication: SUPPORTIVE CARE
     Dosage: UNK
     Dates: start: 20171101, end: 20171104
  23. DALTEPARIN [Concomitant]
     Active Substance: DALTEPARIN
     Indication: SUPPORTIVE CARE
     Dosage: UNK
     Dates: start: 20171102, end: 20171107

REACTIONS (2)
  - Pneumonia aspiration [Fatal]
  - Posterior reversible encephalopathy syndrome [Fatal]

NARRATIVE: CASE EVENT DATE: 20171107
